FAERS Safety Report 20210827 (Version 1)
Quarter: 2021Q4

REPORT INFORMATION
  Report Type: Report from Study
  Country: ES (occurrence: ES)
  Receive Date: 20211221
  Receipt Date: 20211221
  Transmission Date: 20220303
  Serious: Yes (Other)
  Sender: FDA-Public Use
  Company Number: ES-AstraZeneca-2021A882921

PATIENT
  Age: 7 Month
  Sex: Female

DRUGS (1)
  1. SYNAGIS [Suspect]
     Active Substance: PALIVIZUMAB
     Indication: Antiviral prophylaxis
     Dosage: ON AVERAGE, 6.6 DOSES OF PALIVIZUMAB WERE ADMINISTERED PER PATIENT.
     Route: 030

REACTIONS (2)
  - Superinfection bacterial [Unknown]
  - Off label use [Unknown]
